FAERS Safety Report 7831214-6 (Version None)
Quarter: 2011Q4

REPORT INFORMATION
  Report Type: 
  Country: None (occurrence: None)
  Receive Date: 20111021
  Receipt Date: 20111011
  Transmission Date: 20120403
  Serious: Yes (Life-Threatening)
  Sender: FDA-Public Use
  Company Number: US-GILEAD-2009-0024778

PATIENT

DRUGS (7)
  1. CHLORPHENIRAMINE MALEATE [Concomitant]
     Dates: start: 20091001
  2. CIPROFLOXACIN [Concomitant]
     Dates: start: 20090704
  3. TENOFOVIR DISOPROXIL FUMARATE [Suspect]
     Dates: start: 20090319, end: 20090803
  4. METHYL SACICYLATE TOPICAL GEL [Concomitant]
     Dates: start: 20090803, end: 20090813
  5. TINIDAZOLE [Concomitant]
     Dates: start: 20090705, end: 20090706
  6. ACETAMINOPHEN [Concomitant]
     Dates: start: 20090803, end: 20090808
  7. ACETAMINOPHEN [Concomitant]
     Dates: start: 20091001

REACTIONS (1)
  - ABORTION SPONTANEOUS [None]
